FAERS Safety Report 7289508-1 (Version None)
Quarter: 2011Q1

REPORT INFORMATION
  Report Type: 
  Country: None (occurrence: None)
  Receive Date: 20110211
  Receipt Date: 20110129
  Transmission Date: 20110831
  Serious: Yes (Hospitalization)
  Sender: FDA-Public Use
  Company Number: FR-GENENTECH-310253

PATIENT
  Age: 35 Year
  Sex: Female

DRUGS (1)
  1. XOLAIR [Suspect]
     Indication: ASTHMA

REACTIONS (4)
  - PANCREATITIS VIRAL [None]
  - GENERAL PHYSICAL HEALTH DETERIORATION [None]
  - GASTROENTERITIS [None]
  - GASTRIC ULCER [None]
